FAERS Safety Report 5378921-5 (Version None)
Quarter: 2007Q3

REPORT INFORMATION
  Report Type: 
  Country: None (occurrence: None)
  Receive Date: 20070705
  Receipt Date: 20061016
  Transmission Date: 20080115
  Serious: No
  Sender: FDA-Public Use
  Company Number: A0621959A

PATIENT
  Age: 58 Year
  Sex: Male
  Weight: 72.7 kg

DRUGS (2)
  1. PARNATE [Suspect]
     Indication: DEPRESSION
     Dosage: 90MG UNKNOWN
     Route: 048
     Dates: start: 20020729
  2. TRAZODONE HCL [Concomitant]
     Dosage: 25MG AT NIGHT
     Route: 048
     Dates: start: 20020720

REACTIONS (2)
  - DIARRHOEA [None]
  - MALABSORPTION [None]
